FAERS Safety Report 14985104 (Version 5)
Quarter: 2019Q3

REPORT INFORMATION
  Report Type: Other
  Country: FR (occurrence: FR)
  Receive Date: 20180607
  Receipt Date: 20190805
  Transmission Date: 20191004
  Serious: Yes (Other)
  Sender: FDA-Public Use
  Company Number: FR-BIODELIVERY SCIENCES INTERNATIONAL-2017BDSI0258

PATIENT
  Age: 35 Year
  Sex: Male

DRUGS (20)
  1. FENTANYL CITRATE. [Suspect]
     Active Substance: FENTANYL CITRATE
     Indication: CYSTITIS INTERSTITIAL
  2. VENLAFAXINE [Concomitant]
     Active Substance: VENLAFAXINE HYDROCHLORIDE
     Indication: PRODUCT USED FOR UNKNOWN INDICATION
  3. NALOXONE HYDROCHLORIDE/BUPRENORPHINE HYDROCHLORIDE [Suspect]
     Active Substance: BUPRENORPHINE HYDROCHLORIDE\NALOXONE HYDROCHLORIDE
     Dosage: DECREASE OF DOSE
     Route: 065
  4. NALOXONE HYDROCHLORIDE/BUPRENORPHINE HYDROCHLORIDE [Suspect]
     Active Substance: BUPRENORPHINE HYDROCHLORIDE\NALOXONE HYDROCHLORIDE
     Dosage: INITIAL DOSE REINSTATED
     Route: 065
  5. OXYCODONE [Suspect]
     Active Substance: OXYCODONE
     Indication: PRODUCT USED FOR UNKNOWN INDICATION
     Route: 065
  6. OXYCODONE [Suspect]
     Active Substance: OXYCODONE
     Route: 065
  7. MENOTROPHIN [Concomitant]
     Active Substance: MENOTROPINS
     Indication: PRODUCT USED FOR UNKNOWN INDICATION
  8. FENTANYL. [Suspect]
     Active Substance: FENTANYL
     Indication: PELVIC PAIN
     Route: 050
  9. NALOXONE HYDROCHLORIDE/BUPRENORPHINE HYDROCHLORIDE [Suspect]
     Active Substance: BUPRENORPHINE HYDROCHLORIDE\NALOXONE HYDROCHLORIDE
     Dosage: UNK
     Route: 065
  10. MENOTROPHIN [Concomitant]
     Active Substance: MENOTROPINS
     Indication: PRODUCT USED FOR UNKNOWN INDICATION
  11. FENTANYL. [Suspect]
     Active Substance: FENTANYL
     Route: 050
  12. BUPRENORPHINE. [Suspect]
     Active Substance: BUPRENORPHINE
     Indication: PRODUCT USED FOR UNKNOWN INDICATION
     Route: 065
  13. ZOLPIDEM [Concomitant]
     Active Substance: ZOLPIDEM TARTRATE
     Indication: PRODUCT USED FOR UNKNOWN INDICATION
  14. FENTANYL CITRATE. [Suspect]
     Active Substance: FENTANYL CITRATE
     Indication: PELVIC PAIN
     Route: 065
  15. NALOXONE HYDROCHLORIDE/BUPRENORPHINE HYDROCHLORIDE [Suspect]
     Active Substance: BUPRENORPHINE HYDROCHLORIDE\NALOXONE HYDROCHLORIDE
     Dosage: INCREASED UNTIL A STABLE DOSE OF 22MG PER DAY
     Route: 065
  16. NALOXONE HYDROCHLORIDE. [Concomitant]
     Active Substance: NALOXONE HYDROCHLORIDE
     Indication: PRODUCT USED FOR UNKNOWN INDICATION
  17. PREGABALIN. [Concomitant]
     Active Substance: PREGABALIN
     Indication: PRODUCT USED FOR UNKNOWN INDICATION
  18. NALOXONE HYDROCHLORIDE/BUPRENORPHINE HYDROCHLORIDE [Suspect]
     Active Substance: BUPRENORPHINE HYDROCHLORIDE\NALOXONE HYDROCHLORIDE
     Indication: PRODUCT USED FOR UNKNOWN INDICATION
     Route: 065
  19. PENTOSAN POLYSULFATE SODIUM [Concomitant]
     Active Substance: PENTOSAN POLYSULFATE SODIUM
     Indication: PRODUCT USED FOR UNKNOWN INDICATION
  20. HYDROCORTISONE. [Concomitant]
     Active Substance: HYDROCORTISONE
     Indication: PRODUCT USED FOR UNKNOWN INDICATION

REACTIONS (23)
  - Overdose [Unknown]
  - Condition aggravated [Unknown]
  - Hypogonadism [Not Recovered/Not Resolved]
  - Libido decreased [Not Recovered/Not Resolved]
  - Asthenia [Not Recovered/Not Resolved]
  - Inappropriate schedule of product administration [Unknown]
  - Glucocorticoid deficiency [Unknown]
  - Feeling cold [Not Recovered/Not Resolved]
  - Drug dependence [Unknown]
  - Thermophobia [Not Recovered/Not Resolved]
  - Product use in unapproved indication [Unknown]
  - Hypopituitarism [Unknown]
  - Gonadotrophin deficiency [Unknown]
  - Off label use [Unknown]
  - Fatigue [Not Recovered/Not Resolved]
  - Adrenocorticotropic hormone deficiency [Not Recovered/Not Resolved]
  - Disturbance in attention [Not Recovered/Not Resolved]
  - Hyperhidrosis [Not Recovered/Not Resolved]
  - Headache [Not Recovered/Not Resolved]
  - Alcohol abuse [Unknown]
  - Intentional device misuse [Unknown]
  - Memory impairment [Not Recovered/Not Resolved]
  - Pain [Unknown]
